FAERS Safety Report 9258750 (Version 1)
Quarter: 2013Q2

REPORT INFORMATION
  Report Type: Spontaneous
  Country: IT (occurrence: IT)
  Receive Date: 20130426
  Receipt Date: 20130426
  Transmission Date: 20140414
  Serious: Yes (Hospitalization)
  Sender: FDA-Public Use
  Company Number: IT-PFIZER INC-2013129696

PATIENT
  Age: 64 Year
  Sex: Female

DRUGS (9)
  1. IBUPROFEN [Suspect]
     Indication: SCIATICA
     Dosage: 600 MG, DAILY
     Route: 048
     Dates: start: 20130225, end: 20130303
  2. ARTROSILENE [Suspect]
     Indication: SCIATICA
     Dosage: 160 MG/2 ML
     Route: 042
     Dates: start: 20130225, end: 20130303
  3. MEDROL [Concomitant]
     Dosage: ^4 MG COMPRESSE^ 30 COMPRESSE
     Route: 065
  4. METHOTREXATE [Concomitant]
     Dosage: ^10 MG/1,33 ML SOLUZIONE INIETTABILE^ 4 SIRINGHE PRERIEMPITE 1,33 ML
     Route: 065
  5. SELOKEN [Concomitant]
     Dosage: ^100 MG COMPRESSE^ 50 COMPRESSE
     Route: 065
  6. COTAREG [Concomitant]
     Dosage: UNK
     Route: 065
  7. CARDIOASPIRIN [Concomitant]
     Dosage: UNK
     Route: 065
  8. ORENCIA [Concomitant]
     Dosage: UNK
     Route: 065
  9. SIMVASTATIN [Concomitant]
     Dosage: UNK
     Route: 065

REACTIONS (1)
  - Acute myocardial infarction [Recovered/Resolved]
